FAERS Safety Report 15833584 (Version 1)
Quarter: 2019Q1

REPORT INFORMATION
  Report Type: Spontaneous
  Country: US (occurrence: US)
  Receive Date: 20190116
  Receipt Date: 20190116
  Transmission Date: 20190417
  Serious: Yes (Disabling)
  Sender: FDA-Public Use
  Company Number: None

PATIENT
  Age: 58 Year
  Sex: Female
  Weight: 72 kg

DRUGS (1)
  1. KEYTRUDA [Suspect]
     Active Substance: PEMBROLIZUMAB
     Indication: BREAST CANCER FEMALE
     Dosage: ?          OTHER FREQUENCY:X3;?
     Route: 040
     Dates: start: 20180907, end: 20181019

REACTIONS (6)
  - Retinal detachment [None]
  - Scleritis [None]
  - Autoimmune disorder [None]
  - Iritis [None]
  - Optic neuritis [None]
  - Uveitis [None]

NARRATIVE: CASE EVENT DATE: 20181022
